FAERS Safety Report 9671693 (Version 1)
Quarter: 2013Q4

REPORT INFORMATION
  Report Type: Spontaneous
  Country: US (occurrence: US)
  Receive Date: 20131106
  Receipt Date: 20131106
  Transmission Date: 20140711
  Serious: Yes (Hospitalization)
  Sender: FDA-Public Use
  Company Number: PHHY2013US122564

PATIENT
  Age: 61 Year
  Sex: Female

DRUGS (1)
  1. METAXALONE [Suspect]
     Dosage: 56 G, UNK

REACTIONS (7)
  - Hypertension [Unknown]
  - Tachycardia [Recovering/Resolving]
  - Tachypnoea [Unknown]
  - Muscle rigidity [Recovering/Resolving]
  - Hyperthermia [Recovering/Resolving]
  - Pyrexia [Recovering/Resolving]
  - Overdose [Unknown]
